FAERS Safety Report 11617310 (Version 3)
Quarter: 2015Q4

REPORT INFORMATION
  Report Type: Report from Study
  Country: US (occurrence: US)
  Receive Date: 20151009
  Receipt Date: 20151210
  Transmission Date: 20160304
  Serious: Yes (Other)
  Sender: FDA-Public Use
  Company Number: US-JNJFOC-20151002287

PATIENT
  Age: 71 Year
  Sex: Male
  Weight: 122.47 kg

DRUGS (20)
  1. ATORVASTATIN [Concomitant]
     Active Substance: ATORVASTATIN
     Indication: BLOOD CHOLESTEROL INCREASED
     Route: 048
  2. MAGNESIUM [Concomitant]
     Active Substance: MAGNESIUM
     Indication: ROUTINE HEALTH MAINTENANCE
     Route: 048
     Dates: start: 200005
  3. FISH OIL [Concomitant]
     Active Substance: FISH OIL
     Dosage: 1-3 TIMES DAILY
     Route: 048
  4. TESTOSTERONE CYPIONATE. [Concomitant]
     Active Substance: TESTOSTERONE CYPIONATE
     Indication: BLOOD TESTOSTERONE DECREASED
     Route: 030
  5. FENOFIBRATE. [Concomitant]
     Active Substance: FENOFIBRATE
     Indication: BLOOD TRIGLYCERIDES INCREASED
     Route: 048
  6. LISINOPRIL HCTZ [Concomitant]
     Active Substance: HYDROCHLOROTHIAZIDE\LISINOPRIL
     Indication: HYPERTENSION
     Dosage: DOSE: 10/125 MG
     Route: 048
     Dates: end: 200005
  7. TEA [Concomitant]
     Active Substance: TEA LEAF
     Indication: WEIGHT CONTROL
     Route: 048
  8. NIACIN. [Concomitant]
     Active Substance: NIACIN
     Indication: BLOOD CHOLESTEROL
     Route: 048
  9. GINKGO BILOBA [Concomitant]
     Active Substance: GINKGO
     Indication: MEMORY IMPAIRMENT
     Route: 048
  10. ECHINACEA [Concomitant]
     Active Substance: ECHINACEA, UNSPECIFIED
     Indication: CARDIAC DISORDER
     Route: 048
  11. ASPIRIN. [Concomitant]
     Active Substance: ASPIRIN
     Route: 048
     Dates: start: 200005
  12. ECHINACEA [Concomitant]
     Active Substance: ECHINACEA, UNSPECIFIED
     Indication: ROUTINE HEALTH MAINTENANCE
     Route: 048
  13. CINNAMON. [Concomitant]
     Active Substance: CINNAMON
     Indication: DIABETES MELLITUS
     Route: 048
  14. BILBERRY [Concomitant]
     Active Substance: BILBERRY
     Indication: EYE DISORDER
     Route: 048
     Dates: start: 1988
  15. TAMSULOSIN HCL [Concomitant]
     Active Substance: TAMSULOSIN
     Indication: PROPHYLAXIS
     Route: 048
     Dates: start: 201408
  16. INVOKANA [Suspect]
     Active Substance: CANAGLIFLOZIN
     Indication: DIABETES MELLITUS
     Route: 048
     Dates: start: 20150916
  17. METFORMIN [Concomitant]
     Active Substance: METFORMIN HYDROCHLORIDE
     Indication: TYPE 2 DIABETES MELLITUS
     Route: 048
     Dates: start: 198808
  18. NIACIN. [Concomitant]
     Active Substance: NIACIN
     Indication: VITAMIN SUPPLEMENTATION
     Route: 048
  19. LANTUS [Concomitant]
     Active Substance: INSULIN GLARGINE
     Indication: DIABETES MELLITUS
     Dosage: 50 UNITS, ONCE DAILY IN MORNING??55 UNITS, ONCE DAILY AT NIGHT
     Route: 058
     Dates: start: 201407
  20. HUMALOG [Concomitant]
     Active Substance: INSULIN LISPRO
     Indication: DIABETES MELLITUS
     Dosage: 5-15 UNITS
     Route: 058
     Dates: start: 201407

REACTIONS (1)
  - Weight decreased [Not Recovered/Not Resolved]

NARRATIVE: CASE EVENT DATE: 20150916
